FAERS Safety Report 12106361 (Version 4)
Quarter: 2016Q2

REPORT INFORMATION
  Report Type: Report from Study
  Country: US (occurrence: US)
  Receive Date: 20160223
  Receipt Date: 20160511
  Transmission Date: 20160815
  Serious: Yes (Hospitalization, Other)
  Sender: FDA-Public Use
  Company Number: US-GILEAD-2016-0199599

PATIENT
  Age: 72 Year
  Sex: Female

DRUGS (2)
  1. IDELALISIB [Suspect]
     Active Substance: IDELALISIB
     Indication: CHRONIC LYMPHOCYTIC LEUKAEMIA
     Dosage: 150 MG, BID
     Route: 048
     Dates: start: 20150115, end: 201601
  2. IDELALISIB [Suspect]
     Active Substance: IDELALISIB
     Dosage: 150 MG, BID
     Route: 048
     Dates: start: 201602, end: 2016

REACTIONS (7)
  - Stevens-Johnson syndrome [Unknown]
  - Cystitis [Unknown]
  - Colitis [Unknown]
  - Disease progression [Unknown]
  - Kidney infection [Unknown]
  - Onychomadesis [Unknown]
  - Drug interaction [Unknown]
